FAERS Safety Report 22123399 (Version 1)
Quarter: 2023Q1

REPORT INFORMATION
  Report Type: Spontaneous
  Country: US (occurrence: US)
  Receive Date: 20230322
  Receipt Date: 20230322
  Transmission Date: 20230418
  Serious: Yes (Hospitalization)
  Sender: FDA-Public Use
  Company Number: US-BoehringerIngelheim-2023-BI-225330

PATIENT
  Sex: Female

DRUGS (1)
  1. COMBIVENT RESPIMAT [Suspect]
     Active Substance: ALBUTEROL SULFATE\IPRATROPIUM BROMIDE
     Indication: Asthma
     Dosage: SLOW-MIST INHALER

REACTIONS (11)
  - Road traffic accident [Recovered/Resolved]
  - Nerve compression [Recovered/Resolved]
  - Spinal fracture [Recovered/Resolved]
  - Hip arthroplasty [Recovered/Resolved]
  - Wound dehiscence [Recovered/Resolved]
  - Ligament sprain [Not Recovered/Not Resolved]
  - Asthma [Not Recovered/Not Resolved]
  - Off label use [Unknown]
  - Loss of consciousness [Unknown]
  - Concussion [Unknown]
  - Skin abrasion [Unknown]
